FAERS Safety Report 9288360 (Version 2)
Quarter: 2013Q3

REPORT INFORMATION
  Report Type: Spontaneous
  Country: US (occurrence: US)
  Receive Date: 20130514
  Receipt Date: 20130805
  Transmission Date: 20140515
  Serious: Yes (Other)
  Sender: FDA-Public Use
  Company Number: US-ELI_LILLY_AND_COMPANY-US201302001396

PATIENT
  Age: 12 Year
  Sex: Male
  Weight: 35.49 kg

DRUGS (4)
  1. STRATTERA [Suspect]
     Indication: ATTENTION DEFICIT/HYPERACTIVITY DISORDER
     Dosage: 10 MG, UNK
     Dates: start: 20121219
  2. STRATTERA [Suspect]
     Dosage: 25 MG, UNK
  3. STRATTERA [Suspect]
     Dosage: 40 MG, UNK
     Route: 048
     Dates: end: 20130115
  4. PROZAC [Concomitant]

REACTIONS (4)
  - Dehydration [Recovered/Resolved]
  - Hypoglycaemia [Recovered/Resolved]
  - Syncope [Recovered/Resolved]
  - Drug ineffective [Recovered/Resolved]
